FAERS Safety Report 5889130-5 (Version None)
Quarter: 2008Q3

REPORT INFORMATION
  Report Type: 
  Country: None (occurrence: None)
  Receive Date: 20080917
  Receipt Date: 20080911
  Transmission Date: 20090109
  Serious: Yes (Death)
  Sender: FDA-Public Use
  Company Number: 2008JP003863

PATIENT
  Age: 68 Year
  Sex: Female
  Weight: 48 kg

DRUGS (8)
  1. FUNGUARD(MICAFUNGIN) INJECTION [Suspect]
     Indication: SEPSIS
     Dosage: 50 MG, UID/QD, IV DRIP
     Route: 041
     Dates: start: 20080815, end: 20080818
  2. VANCOMYCIN [Concomitant]
  3. MEROPEN (MEROPENEM) INJECTION [Concomitant]
  4. NOREPINEPHRINE BITARTRATE [Concomitant]
  5. KAKODIN (DOPAMINE HYDROCHLORIDE) [Concomitant]
  6. DOBUTREX [Concomitant]
  7. MILRILA (MILRINONE) [Concomitant]
  8. FLUCONAZOLE [Concomitant]

REACTIONS (10)
  - ACUTE RESPIRATORY DISTRESS SYNDROME [None]
  - BLOOD PRESSURE DECREASED [None]
  - BONE MARROW FAILURE [None]
  - CONTINUOUS HAEMODIAFILTRATION [None]
  - GENERAL PHYSICAL HEALTH DETERIORATION [None]
  - NEUTROPHIL COUNT DECREASED [None]
  - PNEUMONIA [None]
  - POST PROCEDURAL COMPLICATION [None]
  - SEPTIC SHOCK [None]
  - WHITE BLOOD CELL COUNT DECREASED [None]
